FAERS Safety Report 8146879-1 (Version None)
Quarter: 2012Q1

REPORT INFORMATION
  Report Type: 
  Country: None (occurrence: None)
  Receive Date: 20120217
  Receipt Date: 20120214
  Transmission Date: 20120608
  Serious: Yes (Death, Hospitalization, Disabling)
  Sender: FDA-Public Use
  Company Number: BR-ABBOTT-11P-020-0843197-00

PATIENT
  Sex: Female
  Weight: 110 kg

DRUGS (6)
  1. DIAZEPAM [Concomitant]
     Indication: DEPRESSION
     Route: 048
  2. CAPTOPRIL [Concomitant]
     Indication: HYPERTENSION
     Route: 048
  3. DEPAKENE [Suspect]
     Indication: CONFUSIONAL STATE
     Route: 048
     Dates: start: 20110729, end: 20110731
  4. HALOPERIDOL [Concomitant]
     Indication: PRODUCT USED FOR UNKNOWN INDICATION
     Route: 048
  5. NORTRIPTYLINE HCL [Concomitant]
     Indication: DEPRESSION
     Route: 048
  6. INSULIN [Concomitant]
     Indication: DIABETES MELLITUS
     Dosage: 20 IU IN MORNING AND 4 IU AT NIGHT
     Route: 058

REACTIONS (9)
  - SOMNOLENCE [None]
  - TONGUE DISORDER [None]
  - SECRETION DISCHARGE [None]
  - SPEECH DISORDER [None]
  - EYELID FUNCTION DISORDER [None]
  - CONFUSIONAL STATE [None]
  - DIABETIC COMPLICATION [None]
  - BLOOD GLUCOSE DECREASED [None]
  - PNEUMONIA [None]
